FAERS Safety Report 8362356 (Version 2)
Quarter: 2015Q1

REPORT INFORMATION
  Report Type: Report from Study
  Country: US (occurrence: US)
  Receive Date: 20120130
  Receipt Date: 20150306
  Transmission Date: 20150721
  Serious: Yes (Death)
  Sender: FDA-Public Use
  Company Number: US-ROCHE-1034452

PATIENT
  Sex: Male

DRUGS (33)
  1. COMPAZINE [Concomitant]
     Active Substance: PROCHLORPERAZINE MALEATE
     Dosage: ONCE IN 6-8 HOURS
     Route: 065
  2. LORTAB (UNITED STATES) [Concomitant]
     Indication: BACK PAIN
     Dosage: EVERY 3-4 HOURS AS REQUIRED
     Route: 065
  3. PERIDEX (UNITED STATES) [Concomitant]
     Dosage: ORAL RINSE
     Route: 065
  4. AUGMENTIN [Concomitant]
     Active Substance: AMOXICILLIN\CLAVULANATE POTASSIUM
     Route: 065
  5. DUONEB [Concomitant]
     Active Substance: ALBUTEROL SULFATE\IPRATROPIUM BROMIDE
  6. ZANTAC [Concomitant]
     Active Substance: RANITIDINE HYDROCHLORIDE
     Route: 048
  7. ETHYOL [Concomitant]
     Active Substance: AMIFOSTINE
     Route: 042
  8. AVASTIN [Suspect]
     Active Substance: BEVACIZUMAB
     Dosage: 05/AUG/2009, 10/AUG/2009, 24/AUG/2009, 31/AUG/2009, 17/SEP/2009, 24/SEP/2009, 01/OCT/2009, 08/OCT/2
     Route: 042
     Dates: start: 20100107
  9. NEUPOGEN [Concomitant]
     Active Substance: FILGRASTIM
     Route: 065
  10. CASODEX [Concomitant]
     Active Substance: BICALUTAMIDE
     Indication: PROSTATE CANCER
     Route: 048
  11. ATIVAN [Concomitant]
     Active Substance: LORAZEPAM
     Route: 042
  12. CARBOPLATIN. [Concomitant]
     Active Substance: CARBOPLATIN
  13. AVASTIN [Suspect]
     Active Substance: BEVACIZUMAB
     Dosage: AND 900 MG ON 22/APR/2008
     Route: 042
     Dates: start: 20080520
  14. MANNITOL. [Concomitant]
     Active Substance: MANNITOL
     Route: 065
  15. LUPRON [Concomitant]
     Active Substance: LEUPROLIDE ACETATE
     Indication: COUGH
     Route: 042
  16. ALOXI [Concomitant]
     Active Substance: PALONOSETRON HYDROCHLORIDE
     Route: 042
  17. PENLAC [Concomitant]
     Active Substance: CICLOPIROX
  18. DECADRON [Concomitant]
     Active Substance: DEXAMETHASONE
     Route: 065
  19. AVASTIN [Suspect]
     Active Substance: BEVACIZUMAB
     Indication: PROSTATE CANCER
     Route: 042
     Dates: start: 20080711
  20. AVASTIN [Suspect]
     Active Substance: BEVACIZUMAB
     Dosage: 19/JAN/2009, 26/JAN/2009, 02/FEB/2009, 16/FEB/2009, 23/FEB/2009, 02/MAR/2009, 09/MAR/2009, 16/MAR/20
     Route: 042
     Dates: start: 20090112
  21. TYLENOL [Concomitant]
     Active Substance: ACETAMINOPHEN
     Dosage: PRN
     Route: 065
  22. ALDACTONE (UNITED STATES) [Concomitant]
     Indication: OEDEMA
  23. TAXOL [Concomitant]
     Active Substance: PACLITAXEL
     Route: 042
  24. NEULASTA [Concomitant]
     Active Substance: PEGFILGRASTIM
     Route: 058
     Dates: start: 20080105
  25. PENLAC [Concomitant]
     Active Substance: CICLOPIROX
  26. ZOMETA [Concomitant]
     Active Substance: ZOLEDRONIC ACID
  27. ALLEGRA [Concomitant]
     Active Substance: FEXOFENADINE HYDROCHLORIDE
     Dosage: DAY BEFORE AND AFTER CISPLATIN
     Route: 065
  28. CASODEX [Concomitant]
     Active Substance: BICALUTAMIDE
     Indication: PROSTATE CANCER METASTATIC
  29. AVASTIN [Suspect]
     Active Substance: BEVACIZUMAB
     Dosage: AND SUBSEQUENTLY ON 30/MAR/2009, 06/APR/2009, 13/APR/2009, 20/APR/2009, 27/APR/2009,  04/MAY/2009,
     Route: 042
     Dates: start: 20090323
  30. CISPLATIN. [Concomitant]
     Active Substance: CISPLATIN
     Route: 042
  31. TAXOTERE [Concomitant]
     Active Substance: DOCETAXEL
     Route: 065
  32. POTASSIUM CHLORIDE. [Concomitant]
     Active Substance: POTASSIUM CHLORIDE
     Route: 065
  33. PERIDEX (UNITED STATES) [Concomitant]

REACTIONS (39)
  - Ascites [Unknown]
  - Musculoskeletal pain [Unknown]
  - Dyspnoea [Unknown]
  - Weight decreased [Unknown]
  - Balance disorder [Unknown]
  - Restlessness [Unknown]
  - Neutropenia [Unknown]
  - Nausea [Recovered/Resolved]
  - Leukopenia [Unknown]
  - Neuropathy peripheral [Unknown]
  - Cholelithiasis [Unknown]
  - Death [Fatal]
  - Pleural effusion [Unknown]
  - Arthralgia [Unknown]
  - Hypokalaemia [Unknown]
  - Decreased activity [Unknown]
  - Myalgia [Unknown]
  - Dyspepsia [Unknown]
  - Bladder hypertrophy [Unknown]
  - Stomatitis [Unknown]
  - Fatigue [Unknown]
  - Decreased appetite [Unknown]
  - Pyrexia [Unknown]
  - Cough [Unknown]
  - Metastases to bone [Unknown]
  - Hypogeusia [Unknown]
  - Reduced bladder capacity [Unknown]
  - Laryngitis [Unknown]
  - Diarrhoea [Unknown]
  - Pelvic pain [Unknown]
  - Epistaxis [Unknown]
  - Oropharyngeal pain [Recovering/Resolving]
  - Pharyngeal ulceration [Unknown]
  - Back pain [Unknown]
  - Hypoaesthesia [Unknown]
  - Off label use [Unknown]
  - Pain in extremity [Unknown]
  - Oedema peripheral [Unknown]
  - Chills [Unknown]
